FAERS Safety Report 9804146 (Version 3)
Quarter: 2014Q3

REPORT INFORMATION
  Report Type: Spontaneous
  Country: US (occurrence: None)
  Receive Date: 20140106
  Receipt Date: 20140815
  Transmission Date: 20150326
  Serious: Yes (Hospitalization, Other)
  Sender: FDA-Public Use
  Company Number: ADR-2014-00006

PATIENT
  Age: 71 Year
  Sex: Female

DRUGS (4)
  1. BACLOFEN. [Suspect]
     Active Substance: BACLOFEN
     Indication: CANCER PAIN
  2. BUPIVACAINE [Suspect]
     Active Substance: BUPIVACAINE
  3. BACLOFEN. [Suspect]
     Active Substance: BACLOFEN
     Indication: NEOPLASM MALIGNANT
  4. DILAUDID [Suspect]
     Active Substance: HYDROMORPHONE HYDROCHLORIDE

REACTIONS (11)
  - Tremor [None]
  - Drug withdrawal syndrome [None]
  - Implant site infection [None]
  - Infection [None]
  - Cerebrospinal fluid leakage [None]
  - Headache [None]
  - Implant site erythema [None]
  - Nausea [None]
  - Diarrhoea [None]
  - Pain [None]
  - Implant site swelling [None]

NARRATIVE: CASE EVENT DATE: 20131031
